FAERS Safety Report 21662842 (Version 1)
Quarter: 2022Q4

REPORT INFORMATION
  Report Type: Spontaneous
  Country: US (occurrence: None)
  Receive Date: 20221129
  Receipt Date: 20221129
  Transmission Date: 20230113
  Serious: Yes (Other)
  Sender: FDA-Public Use
  Company Number: None

PATIENT
  Age: 81 Year
  Sex: Female

DRUGS (16)
  1. ZOLEDRONIC ACID [Suspect]
     Active Substance: ZOLEDRONIC ACID
     Indication: Osteoporosis
     Dosage: 5MG Q YEAR IV?
     Route: 042
     Dates: start: 201812
  2. AMBIEN [Concomitant]
  3. ATORVASTATIN [Concomitant]
  4. calcio [Concomitant]
  5. COLACE [Concomitant]
  6. LEVOTHYROXINE [Concomitant]
     Active Substance: LEVOTHYROXINE
  7. MAGNESIUM OXIDE [Concomitant]
     Active Substance: MAGNESIUM OXIDE
  8. MELOXICAM [Concomitant]
     Active Substance: MELOXICAM
  9. multivitamin adults [Concomitant]
  10. NORCO [Concomitant]
     Active Substance: ACETAMINOPHEN\HYDROCODONE BITARTRATE
  11. osteo bi-flex triple str [Concomitant]
  12. PREVACID [Concomitant]
     Active Substance: LANSOPRAZOLE
  13. PROZAC [Concomitant]
  14. WELLBUTRIN XL [Concomitant]
     Active Substance: BUPROPION HYDROCHLORIDE
  15. VITAMIN B COMPLEX [Concomitant]
     Active Substance: CYANOCOBALAMIN\DEXPANTHENOL\NIACINAMIDE\PYRIDOXINE HYDROCHLORIDE\RIBOFLAVIN 5^-PHOSPHATE SODIUM\THIA
  16. FERROUS SULFATE [Concomitant]
     Active Substance: FERROUS SULFATE

REACTIONS (3)
  - Fall [None]
  - Spinal fracture [None]
  - Physical disability [None]

NARRATIVE: CASE EVENT DATE: 20220124
